FAERS Safety Report 11162560 (Version 1)
Quarter: 2015Q2

REPORT INFORMATION
  Report Type: Spontaneous
  Country: US (occurrence: US)
  Receive Date: 20150604
  Receipt Date: 20150604
  Transmission Date: 20150821
  Serious: No
  Sender: FDA-Public Use
  Company Number: US-SA-2014SA172892

PATIENT
  Age: 62 Year
  Sex: Male

DRUGS (2)
  1. SOLOSTAR [Concomitant]
     Active Substance: DEVICE
  2. LANTUS SOLOSTAR [Suspect]
     Active Substance: INSULIN GLARGINE
     Indication: TYPE 2 DIABETES MELLITUS
     Dosage: DOSE : 60 AM/60 PM;?UNITS : UNSPECIFIED
     Route: 065

REACTIONS (3)
  - Drug administration error [Unknown]
  - Injection site haemorrhage [Unknown]
  - Injection site mass [Unknown]
